FAERS Safety Report 12466335 (Version 1)
Quarter: 2016Q2

REPORT INFORMATION
  Report Type: Report from Study
  Country: DE (occurrence: DE)
  Receive Date: 20160615
  Receipt Date: 20160615
  Transmission Date: 20160815
  Serious: Yes (Other)
  Sender: FDA-Public Use
  Company Number: DE-ROCHE-1775280

PATIENT
  Sex: Male

DRUGS (4)
  1. PILOCARPINE. [Concomitant]
     Active Substance: PILOCARPINE
     Indication: IRIS ADHESIONS
     Dosage: LEFT EYE
     Route: 065
     Dates: start: 20150922, end: 20150924
  2. FLOXAL [Concomitant]
     Active Substance: OFLOXACIN
     Indication: IRIS INCARCERATION
     Dosage: LEFT EYE
     Route: 065
  3. PREDNISOLONE. [Concomitant]
     Active Substance: PREDNISOLONE
     Indication: IRIS INCARCERATION
     Dosage: LEFT EYE
     Route: 065
  4. RANIBIZUMAB [Suspect]
     Active Substance: RANIBIZUMAB
     Indication: NEOVASCULAR AGE-RELATED MACULAR DEGENERATION
     Dosage: 0.5 MG, UNK, 1X
     Route: 050
     Dates: start: 20160418, end: 20160418

REACTIONS (1)
  - Retinal cyst [Not Recovered/Not Resolved]

NARRATIVE: CASE EVENT DATE: 20160527
